FAERS Safety Report 18894473 (Version 1)
Quarter: 2021Q1

REPORT INFORMATION
  Report Type: Spontaneous
  Country: US (occurrence: US)
  Receive Date: 20210215
  Receipt Date: 20210215
  Transmission Date: 20210420
  Serious: Yes (Life-Threatening, Other)
  Sender: FDA-Public Use
  Company Number: NVSC2021US034590

PATIENT
  Age: 63 Year
  Sex: Female
  Weight: 66.5 kg

DRUGS (1)
  1. KYMRIAH [Suspect]
     Active Substance: TISAGENLECLEUCEL
     Indication: DIFFUSE LARGE B-CELL LYMPHOMA
     Dosage: UNK
     Route: 065
     Dates: start: 20200807

REACTIONS (8)
  - Somnolence [Unknown]
  - Pyrexia [Unknown]
  - Neurotoxicity [Unknown]
  - Aphasia [Unknown]
  - Hallucination [Unknown]
  - Ill-defined disorder [Unknown]
  - Encephalopathy [Unknown]
  - Confusional state [Unknown]

NARRATIVE: CASE EVENT DATE: 20200810
